FAERS Safety Report 4555655-8 (Version None)
Quarter: 2005Q1

REPORT INFORMATION
  Report Type: 
  Country: None (occurrence: None)
  Receive Date: 20050118
  Receipt Date: 20050118
  Transmission Date: 20050727
  Serious: Yes (Other)
  Sender: FDA-Public Use
  Company Number: None

PATIENT
  Age: 63 Year
  Sex: Male
  Weight: 115.6672 kg

DRUGS (1)
  1. ZICAM   15ML   ZICAM [Suspect]
     Indication: NASOPHARYNGITIS
     Dosage: EVERY 4 HOURS NOSE NASAL
     Route: 045
     Dates: start: 20040802, end: 20040805

REACTIONS (2)
  - AGEUSIA [None]
  - ANOSMIA [None]
